FAERS Safety Report 14977577 (Version 5)
Quarter: 2018Q4

REPORT INFORMATION
  Report Type: Other
  Country: PL (occurrence: PL)
  Receive Date: 20180606
  Receipt Date: 20181113
  Transmission Date: 20190204
  Serious: Yes (Hospitalization, Other)
  Sender: FDA-Public Use
  Company Number: PL-MERCK KGAA-2049045

PATIENT
  Age: 37 Year
  Sex: Female

DRUGS (30)
  1. CEFUROXIME. [Suspect]
     Active Substance: CEFUROXIME
     Route: 065
     Dates: start: 20150501
  2. METHYLDOPA. [Suspect]
     Active Substance: METHYLDOPA
     Route: 065
     Dates: start: 20150301
  3. IRON [Suspect]
     Active Substance: IRON
     Route: 048
     Dates: start: 201408
  4. ERYTHROPOIETIN [Suspect]
     Active Substance: ERYTHROPOIETIN
     Route: 058
     Dates: start: 20150801
  5. CHOLECALCIFEROL [Concomitant]
     Active Substance: CHOLECALCIFEROL
  6. ALFACALCIDOL [Suspect]
     Active Substance: ALFACALCIDOL
  7. TORASEMIDE [Suspect]
     Active Substance: TORSEMIDE
     Route: 065
  8. IRON [Suspect]
     Active Substance: IRON
     Route: 048
     Dates: start: 201503
  9. VENOFER [Suspect]
     Active Substance: IRON SUCROSE
     Route: 048
     Dates: start: 201503
  10. IRON DEXTRAN [Suspect]
     Active Substance: IRON DEXTRAN
     Route: 042
  11. FERINJECT [Suspect]
     Active Substance: FERRIC CARBOXYMALTOSE
     Route: 042
  12. VENOFER [Suspect]
     Active Substance: IRON SUCROSE
     Route: 042
  13. IRON DEXTRAN [Suspect]
     Active Substance: IRON DEXTRAN
     Route: 048
     Dates: start: 201503
  14. ACETYLSALICYLIC ACID [Suspect]
     Active Substance: ASPIRIN
     Route: 048
     Dates: start: 20150301
  15. HEPARIN [Suspect]
     Active Substance: HEPARIN SODIUM
  16. COLECALCIFEROL W/RISEDRONIC ACID [Concomitant]
  17. ASCORBIC ACID W/CALCIUM GLUBIONATE(MACALVIT) [Concomitant]
     Dates: start: 201503
  18. FOLIC ACID. [Suspect]
     Active Substance: FOLIC ACID
     Route: 048
     Dates: start: 20150301
  19. FERINJECT [Suspect]
     Active Substance: FERRIC CARBOXYMALTOSE
     Route: 042
     Dates: start: 201408, end: 201408
  20. VENOFER [Suspect]
     Active Substance: IRON SUCROSE
     Route: 048
     Dates: start: 201408
  21. EUTHYROX [Suspect]
     Active Substance: LEVOTHYROXINE SODIUM
     Indication: HYPOTHYROIDISM
     Dates: start: 20150501
  22. IRON DEXTRAN [Suspect]
     Active Substance: IRON DEXTRAN
     Route: 048
     Dates: start: 201408
  23. SIMVASTATIN. [Suspect]
     Active Substance: SIMVASTATIN
     Route: 065
     Dates: end: 2015
  24. SPIRAMYCIN [Suspect]
     Active Substance: SPIRAMYCIN
     Dates: start: 20150501
  25. EPOETIN BETA [Suspect]
     Active Substance: ERYTHROPOIETIN
     Route: 058
  26. MALTOFER (FERRIC HYDROXIDE POLYMALTOSE COMPLEX) [Suspect]
     Active Substance: IRON POLYMALTOSE
     Route: 048
     Dates: start: 201503
  27. IRON [Suspect]
     Active Substance: IRON
     Route: 042
     Dates: start: 201408
  28. ERYTHROPOIETIN [Suspect]
     Active Substance: ERYTHROPOIETIN
     Route: 058
  29. ASCORBIC ACID W/FERROUS SULFATE(KENDURAL C) [Concomitant]
     Active Substance: ASCORBIC ACID\FERROUS SULFATE
     Dates: start: 201503
  30. ASCORBIC ACID. [Suspect]
     Active Substance: ASCORBIC ACID
     Route: 048
     Dates: start: 201503

REACTIONS (13)
  - Premature rupture of membranes [Recovered/Resolved]
  - Premature delivery [Recovered/Resolved]
  - Maternal exposure during pregnancy [Recovered/Resolved]
  - Haematocrit decreased [Unknown]
  - Blood albumin decreased [Unknown]
  - Cystitis [Unknown]
  - Oedema peripheral [Unknown]
  - Contraindicated product administered [Unknown]
  - Haemoglobin decreased [Unknown]
  - Live birth [Recovered/Resolved]
  - Toxoplasmosis [Unknown]
  - Off label use [Unknown]
  - Hypothyroidism [Unknown]

NARRATIVE: CASE EVENT DATE: 201505
